FAERS Safety Report 4669169-8 (Version None)
Quarter: 2005Q2

REPORT INFORMATION
  Report Type: 
  Country: None (occurrence: None)
  Receive Date: 20050519
  Receipt Date: 20050504
  Transmission Date: 20051028
  Serious: Yes (Hospitalization)
  Sender: FDA-Public Use
  Company Number: 106579ISR

PATIENT
  Age: 56 Year
  Sex: Female

DRUGS (4)
  1. PREDNISOLONE [Suspect]
     Dosage: 22.5 MILLIGRAM, ORAL
     Route: 048
     Dates: start: 20041006
  2. FLUCONAZOLE [Suspect]
     Dosage: 100 MILLIGRAM; ORAL
     Route: 048
     Dates: start: 20041006
  3. LOSARTAN POTASSIUM [Suspect]
     Dosage: 200 MILLIGRAM; ORAL
     Dates: start: 20041018
  4. CYCLOSPORINE [Concomitant]

REACTIONS (2)
  - DRUG INTERACTION [None]
  - HYPOKALAEMIA [None]
